FAERS Safety Report 11281853 (Version 1)
Quarter: 2015Q3

REPORT INFORMATION
  Report Type: Spontaneous
  Country: GB (occurrence: GB)
  Receive Date: 20150717
  Receipt Date: 20150717
  Transmission Date: 20151125
  Serious: Yes (Death, Hospitalization, Other)
  Sender: FDA-Public Use
  Company Number: GB-BAUSCH-BL-2015-016679

PATIENT
  Age: 40 Year
  Sex: Male

DRUGS (24)
  1. LIORESAL [Suspect]
     Active Substance: BACLOFEN
     Route: 037
     Dates: start: 20140121, end: 20140203
  2. ZOPICLONE [Suspect]
     Active Substance: ZOPICLONE
     Indication: INSOMNIA
     Route: 048
     Dates: start: 20130220
  3. LIORESAL [Suspect]
     Active Substance: BACLOFEN
     Route: 037
     Dates: start: 20140120, end: 20140120
  4. LIORESAL [Suspect]
     Active Substance: BACLOFEN
     Route: 037
     Dates: start: 20140207, end: 20140224
  5. IBUPROFEN. [Suspect]
     Active Substance: IBUPROFEN
     Indication: ANALGESIC THERAPY
     Route: 048
     Dates: start: 20140109
  6. BACLOFEN. [Suspect]
     Active Substance: BACLOFEN
     Indication: MUSCLE SPASTICITY
     Route: 048
     Dates: start: 20120801, end: 20140120
  7. LIORESAL [Suspect]
     Active Substance: BACLOFEN
     Route: 037
     Dates: start: 20140128, end: 20140130
  8. LIORESAL [Suspect]
     Active Substance: BACLOFEN
     Route: 037
     Dates: start: 20140226, end: 20140310
  9. LIORESAL [Suspect]
     Active Substance: BACLOFEN
     Route: 037
     Dates: start: 20140311, end: 20140224
  10. SILDENAFIL CITRATE. [Suspect]
     Active Substance: SILDENAFIL CITRATE
     Indication: ERECTILE DYSFUNCTION
     Route: 048
     Dates: start: 20130220
  11. PARACETAMOL [Suspect]
     Active Substance: ACETAMINOPHEN
     Indication: ANALGESIC THERAPY
     Route: 048
     Dates: start: 20121112
  12. AMLODIPINE BESILATE [Suspect]
     Active Substance: AMLODIPINE BESYLATE
     Indication: HYPERTENSION
     Route: 048
     Dates: start: 20120705
  13. LIORESAL [Suspect]
     Active Substance: BACLOFEN
     Route: 037
     Dates: start: 20140122, end: 20140122
  14. CO-DYDRAMOL [Suspect]
     Active Substance: ACETAMINOPHEN\DIHYDROCODEINE
     Indication: ANALGESIC THERAPY
     Route: 048
     Dates: start: 20140109
  15. RAMIPRIL. [Suspect]
     Active Substance: RAMIPRIL
     Indication: HYPERTENSION
     Route: 048
     Dates: start: 20140113
  16. LIORESAL [Suspect]
     Active Substance: BACLOFEN
     Route: 037
     Dates: start: 20140123, end: 20140127
  17. LIORESAL [Suspect]
     Active Substance: BACLOFEN
     Route: 037
     Dates: start: 20140204, end: 20140206
  18. VENLAFAXINE [Suspect]
     Active Substance: VENLAFAXINE HYDROCHLORIDE
     Indication: DEPRESSION
     Route: 048
     Dates: start: 20140226
  19. METOPROLOL [Suspect]
     Active Substance: METOPROLOL
     Indication: HYPERTENSION
     Route: 048
     Dates: start: 20120705
  20. SERTRALINE [Suspect]
     Active Substance: SERTRALINE HYDROCHLORIDE
     Indication: DEPRESSION
     Route: 048
     Dates: start: 20121210, end: 20140101
  21. LIORESAL [Suspect]
     Active Substance: BACLOFEN
     Indication: MUSCLE SPASTICITY
     Route: 037
     Dates: start: 20140117, end: 20140119
  22. LIORESAL [Suspect]
     Active Substance: BACLOFEN
     Route: 037
     Dates: start: 20140121, end: 20140121
  23. LIORESAL [Suspect]
     Active Substance: BACLOFEN
     Route: 037
     Dates: start: 20140225, end: 20140225
  24. MIRTAZAPINE. [Suspect]
     Active Substance: MIRTAZAPINE
     Indication: PRODUCT USED FOR UNKNOWN INDICATION
     Dosage: UNKNOWN
     Route: 065
     Dates: start: 20140522

REACTIONS (28)
  - Alcohol poisoning [Fatal]
  - Condition aggravated [Unknown]
  - Stress [Recovered/Resolved]
  - Mental disorder [Recovered/Resolved]
  - Scar [Unknown]
  - Conjunctival hyperaemia [Unknown]
  - Fall [Unknown]
  - Petechiae [Unknown]
  - Pulmonary congestion [Unknown]
  - Pulmonary oedema [Unknown]
  - Wound dehiscence [Recovered/Resolved]
  - Cardiomegaly [Unknown]
  - Toxicity to various agents [Unknown]
  - Pain in extremity [Unknown]
  - Depression [Recovered/Resolved]
  - Anxiety [Recovered/Resolved]
  - Macrophages increased [Unknown]
  - Scratch [Unknown]
  - Unevaluable event [Unknown]
  - Insomnia [Unknown]
  - Neutrophil count increased [Unknown]
  - Onychomycosis [Unknown]
  - Hepatic steatosis [Unknown]
  - Implant site infection [Recovered/Resolved]
  - Implant site extravasation [Recovered/Resolved]
  - Self injurious behaviour [Unknown]
  - Erectile dysfunction [Unknown]
  - Pain [Unknown]

NARRATIVE: CASE EVENT DATE: 20140223
